FAERS Safety Report 6066201-4 (Version None)
Quarter: 2009Q1

REPORT INFORMATION
  Report Type: 
  Country: None (occurrence: None)
  Receive Date: 20090205
  Receipt Date: 20090127
  Transmission Date: 20090719
  Serious: Yes (Other)
  Sender: FDA-Public Use
  Company Number: PHHY2009GB01202

PATIENT
  Sex: Male

DRUGS (3)
  1. CLOZARIL [Suspect]
     Indication: SCHIZOPHRENIA
     Dosage: 450 MG/DAY
     Route: 048
     Dates: start: 19951018
  2. CLOZARIL [Suspect]
     Dosage: 900 MG
     Route: 048
  3. CLOZARIL [Suspect]
     Dosage: 150 MG
     Route: 048

REACTIONS (3)
  - ACCIDENTAL OVERDOSE [None]
  - CONFUSIONAL STATE [None]
  - LOWER RESPIRATORY TRACT INFECTION [None]
